FAERS Safety Report 9450979 (Version 2)
Quarter: 2013Q3

REPORT INFORMATION
  Report Type: Spontaneous
  Country: BR (occurrence: BR)
  Receive Date: 20130809
  Receipt Date: 20130903
  Transmission Date: 20140515
  Serious: Yes (Other)
  Sender: FDA-Public Use
  Company Number: PHHY2013BR083798

PATIENT
  Age: 58 Year
  Sex: Female

DRUGS (11)
  1. APRESOLIN [Suspect]
     Indication: HYPERTENSION
     Dosage: 1 DF (50 MG) DAILY
     Route: 048
     Dates: start: 201302
  2. APRESOLIN [Suspect]
     Dosage: 1 DF (50 MG) DAILY
     Route: 048
     Dates: start: 20130730, end: 20130801
  3. ACETAMINOPHEN [Concomitant]
     Indication: BACK PAIN
     Dosage: 2 DF, DAILY
     Route: 048
  4. PIROXICAM [Concomitant]
     Indication: BACK PAIN
     Dosage: 2 DF, DAILY
     Route: 048
  5. VITAMIN D3 [Concomitant]
     Indication: BONE DECALCIFICATION
     Dosage: 1000 IU, DAILY
     Route: 048
  6. CALCIUM CARBONATE [Concomitant]
     Indication: BONE DECALCIFICATION
     Dosage: 1200 MG, DAILY
     Route: 048
  7. CHLOROQUINE [Concomitant]
     Indication: BACK PAIN
     Dosage: 2 DF, DAILY
     Route: 048
  8. FAMOTIDINE [Concomitant]
     Indication: BACK PAIN
     Dosage: 2 DF, DAILY
     Route: 048
  9. ATENOLOL [Concomitant]
     Indication: HYPERTENSION
     Dosage: 1 DF(50MG), UNK
     Route: 048
  10. OMEPRAZOLE [Concomitant]
     Indication: GASTRITIS
     Dosage: 1 DF(20MG), DAILY
     Route: 048
  11. OMEPRAZOLE [Concomitant]
     Indication: GASTROOESOPHAGEAL REFLUX DISEASE

REACTIONS (8)
  - Blood pressure increased [Recovered/Resolved]
  - Headache [Recovered/Resolved]
  - Blood pressure decreased [Not Recovered/Not Resolved]
  - Dizziness [Not Recovered/Not Resolved]
  - Lethargy [Not Recovered/Not Resolved]
  - Vision blurred [Not Recovered/Not Resolved]
  - Nausea [Recovered/Resolved]
  - Neck pain [Not Recovered/Not Resolved]
